FAERS Safety Report 9554938 (Version 2)
Quarter: 2013Q3

REPORT INFORMATION
  Report Type: Report from Study
  Country: CL (occurrence: CL)
  Receive Date: 20130926
  Receipt Date: 20130927
  Transmission Date: 20140515
  Serious: Yes (Hospitalization)
  Sender: FDA-Public Use
  Company Number: CL-ROCHE-1281213

PATIENT
  Age: 39 Year
  Sex: Male
  Weight: 45 kg

DRUGS (1)
  1. XELODA [Suspect]
     Indication: COLON CANCER
     Route: 048
     Dates: start: 20130717, end: 20130830

REACTIONS (1)
  - Intestinal obstruction [Recovered/Resolved]
